FAERS Safety Report 10191651 (Version 2)
Quarter: 2014Q2

REPORT INFORMATION
  Report Type: Spontaneous
  Country: GB (occurrence: GB)
  Receive Date: 20140523
  Receipt Date: 20140523
  Transmission Date: 20141212
  Serious: Yes (Other)
  Sender: FDA-Public Use
  Company Number: GB-009507513-1405GBR002132

PATIENT
  Age: 21 Year
  Sex: Female
  Weight: 75 kg

DRUGS (1)
  1. NEXPLANON [Suspect]
     Indication: CONTRACEPTION
     Dosage: UNK
     Route: 058
     Dates: start: 20120127, end: 20140416

REACTIONS (4)
  - Abortion spontaneous [Unknown]
  - Unintended pregnancy [Recovered/Resolved]
  - Haemorrhage [Unknown]
  - Abdominal discomfort [Unknown]
